FAERS Safety Report 8138400-9 (Version None)
Quarter: 2012Q1

REPORT INFORMATION
  Report Type: 
  Country: None (occurrence: None)
  Receive Date: 20120215
  Receipt Date: 20120209
  Transmission Date: 20120608
  Serious: Yes (Other)
  Sender: FDA-Public Use
  Company Number: AT-TEVA-322319ISR

PATIENT
  Age: 69 Year
  Sex: Female

DRUGS (1)
  1. MIRTAZAPINE [Suspect]
     Dosage: 15 MILLIGRAM;
     Route: 048
     Dates: start: 20111227, end: 20111227

REACTIONS (2)
  - CIRCULATORY COLLAPSE [None]
  - FALL [None]
